FAERS Safety Report 8052080-2 (Version None)
Quarter: 2012Q1

REPORT INFORMATION
  Report Type: 
  Country: None (occurrence: None)
  Receive Date: 20120118
  Receipt Date: 20120113
  Transmission Date: 20120608
  Serious: No
  Sender: FDA-Public Use
  Company Number: US-PFIZER INC-2012011005

PATIENT
  Sex: Female
  Weight: 72.6 kg

DRUGS (4)
  1. GABAPENTIN [Suspect]
     Indication: PAIN
     Dosage: 300 MG, 3X/DAY
     Route: 048
     Dates: start: 20111021, end: 20111022
  2. ACETYLSALICYLIC ACID [Concomitant]
     Dosage: UNK, 1X/DAY
  3. CARVEDILOL [Concomitant]
     Dosage: UNK
  4. METFORMIN [Concomitant]
     Indication: DIABETES MELLITUS
     Dosage: UNK

REACTIONS (3)
  - FEELING ABNORMAL [None]
  - LIVER DISORDER [None]
  - HEPATIC ENZYME ABNORMAL [None]
